FAERS Safety Report 4785543-3 (Version None)
Quarter: 2005Q3

REPORT INFORMATION
  Report Type: 
  Country: None (occurrence: None)
  Receive Date: 20050929
  Receipt Date: 20050916
  Transmission Date: 20060218
  Serious: Yes (Hospitalization)
  Sender: FDA-Public Use
  Company Number: 2005116661

PATIENT
  Age: 78 Year
  Sex: Female
  Weight: 90.7194 kg

DRUGS (9)
  1. DETROL LA [Suspect]
     Indication: ILL-DEFINED DISORDER
  2. ACTONEL [Concomitant]
  3. PREVACID [Concomitant]
  4. LOTREL [Concomitant]
  5. PREDNISONE [Concomitant]
  6. CALCIUM (CALCIUM) [Concomitant]
  7. MAGNESIUM (MAGNESIUM) [Concomitant]
  8. ONE-A-DAY (ASCORBIC ACID, CYANOCOBALAMIN, ERGOCALCIFEROL, NICOTINAMIDE [Concomitant]
  9. SYNTHROID [Concomitant]

REACTIONS (1)
  - PNEUMONIA [None]
